FAERS Safety Report 8344236-6 (Version None)
Quarter: 2012Q2

REPORT INFORMATION
  Report Type: 
  Country: None (occurrence: None)
  Receive Date: 20120508
  Receipt Date: 20120427
  Transmission Date: 20120825
  Serious: Yes (Other)
  Sender: FDA-Public Use
  Company Number: JP-VERTEX PHARMACEUTICALS INC.-AE-2012-006323

PATIENT
  Age: 63 Year
  Sex: Male

DRUGS (8)
  1. PEGINTERFERON ALFA-2B [Concomitant]
     Indication: HEPATITIS C
     Route: 051
     Dates: start: 20120305
  2. RHYTHMY [Concomitant]
     Route: 048
  3. AMLODIPINE BESYLATE [Concomitant]
     Route: 048
  4. RIBAVIRIN [Concomitant]
     Indication: HEPATITIS C
     Route: 048
     Dates: start: 20120305
  5. SELBEX [Concomitant]
     Route: 048
  6. TELAVIC (TELAPREVIR) [Suspect]
     Indication: HEPATITIS C
     Route: 048
     Dates: start: 20120305
  7. ZOLPIDEM [Concomitant]
     Route: 048
  8. FAMOTIDINE [Concomitant]
     Route: 048

REACTIONS (1)
  - DRUG ERUPTION [None]
